FAERS Safety Report 6134411-3 (Version None)
Quarter: 2009Q1

REPORT INFORMATION
  Report Type: 
  Country: None (occurrence: None)
  Receive Date: 20090327
  Receipt Date: 20090319
  Transmission Date: 20090719
  Serious: Yes (Other)
  Sender: FDA-Public Use
  Company Number: NL-JNJFOC-20090305701

PATIENT
  Sex: Male
  Weight: 90 kg

DRUGS (2)
  1. RISPERDAL [Suspect]
     Indication: SCHIZOPHRENIA
     Route: 065
  2. ZOPICLON [Suspect]
     Indication: INSOMNIA
     Route: 065

REACTIONS (2)
  - AMNESIA [None]
  - INSOMNIA [None]
